FAERS Safety Report 19477537 (Version 1)
Quarter: 2021Q2

REPORT INFORMATION
  Report Type: Spontaneous
  Country: US (occurrence: US)
  Receive Date: 20210630
  Receipt Date: 20210630
  Transmission Date: 20210717
  Serious: Yes (Other)
  Sender: FDA-Public Use
  Company Number: US-ACELLA PHARMACEUTICALS, LLC-2113301

PATIENT
  Sex: Female

DRUGS (1)
  1. NP THYROID [Suspect]
     Active Substance: LEVOTHYROXINE\LIOTHYRONINE

REACTIONS (9)
  - Laboratory test abnormal [Unknown]
  - Adrenal disorder [Unknown]
  - Impaired work ability [Unknown]
  - Fatigue [Unknown]
  - Weight increased [Unknown]
  - Depression [Unknown]
  - Insomnia [Unknown]
  - Body temperature fluctuation [Unknown]
  - Feeling abnormal [Unknown]
